FAERS Safety Report 23684587 (Version 1)
Quarter: 2024Q1

REPORT INFORMATION
  Report Type: Spontaneous
  Country: US (occurrence: US)
  Receive Date: 20240328
  Receipt Date: 20240328
  Transmission Date: 20240409
  Serious: Yes (Other)
  Sender: FDA-Public Use
  Company Number: US-ASTELLAS-2024US009018

PATIENT
  Age: 47 Year
  Sex: Female

DRUGS (1)
  1. VEOZAH [Suspect]
     Active Substance: FEZOLINETANT
     Indication: Menopausal symptoms
     Route: 048

REACTIONS (5)
  - Blood pressure increased [Unknown]
  - Anxiety [Unknown]
  - Stress [Unknown]
  - Condition aggravated [Unknown]
  - Panic attack [Unknown]
